FAERS Safety Report 5001949-1 (Version None)
Quarter: 2006Q2

REPORT INFORMATION
  Report Type: 
  Country: None (occurrence: None)
  Receive Date: 20060511
  Receipt Date: 20060511
  Transmission Date: 20061013
  Serious: No
  Sender: FDA-Public Use
  Company Number: None

PATIENT
  Age: 48 Year
  Sex: Male
  Weight: 100 kg

DRUGS (11)
  1. GAMMUNEX 10% [Suspect]
     Indication: AMYOTROPHIC LATERAL SCLEROSIS
     Dosage: 40GM IV Q WEEK
     Route: 042
     Dates: start: 20060426
  2. GAMMUNEX 10% [Suspect]
     Indication: NEUROPATHY
     Dosage: 40GM IV Q WEEK
     Route: 042
     Dates: start: 20060426
  3. GAMMUNEX 10% [Suspect]
     Indication: AMYOTROPHIC LATERAL SCLEROSIS
     Dosage: 40GM IV Q WEEK
     Route: 042
     Dates: start: 20060501
  4. GAMMUNEX 10% [Suspect]
     Indication: NEUROPATHY
     Dosage: 40GM IV Q WEEK
     Route: 042
     Dates: start: 20060501
  5. RILUTEC [Concomitant]
  6. MINOCYCLINE HCL [Concomitant]
  7. COQ10 [Concomitant]
  8. LIPOIC ACID [Concomitant]
  9. FISH OIL [Concomitant]
  10. ASPIRIN [Concomitant]
  11. MULTI-VITAMIN [Concomitant]

REACTIONS (1)
  - HYPERHIDROSIS [None]
